FAERS Safety Report 17823152 (Version 1)
Quarter: 2020Q2

REPORT INFORMATION
  Report Type: Spontaneous
  Country: US (occurrence: US)
  Receive Date: 20200526
  Receipt Date: 20200526
  Transmission Date: 20200714
  Serious: Yes (Other)
  Sender: FDA-Public Use
  Company Number: NVSC2020US143157

PATIENT
  Age: 4 Year
  Sex: Female
  Weight: 20.3 kg

DRUGS (4)
  1. EPINEPHRINE. [Suspect]
     Active Substance: EPINEPHRINE
     Indication: LOCAL ANAESTHESIA
     Dosage: UNK (W/L:100,000)
     Route: 065
  2. ARTICAINE [Suspect]
     Active Substance: ARTICAINE
     Indication: LOCAL ANAESTHESIA
     Dosage: UNK (4 PERCENT)
     Route: 065
  3. LIDOCAINE. [Suspect]
     Active Substance: LIDOCAINE
     Indication: LOCAL ANAESTHESIA
     Dosage: UNK (W/L:100,000)
     Route: 061
  4. NITROUS OXIDE. [Concomitant]
     Active Substance: NITROUS OXIDE
     Indication: SEDATIVE THERAPY
     Dosage: UNK
     Route: 065

REACTIONS (4)
  - Dystonia [Unknown]
  - Agitation [Unknown]
  - Pain [Unknown]
  - Ataxia [Unknown]
